FAERS Safety Report 5586394-2 (Version None)
Quarter: 2008Q1

REPORT INFORMATION
  Report Type: 
  Country: None (occurrence: None)
  Receive Date: 20080110
  Receipt Date: 20071231
  Transmission Date: 20080703
  Serious: Yes (Other)
  Sender: FDA-Public Use
  Company Number: PHHY2007US01152

PATIENT
  Sex: Female

DRUGS (2)
  1. HYDROCHLOROTHIAZIDE [Suspect]
     Indication: HYPERTENSION
     Dosage: 10 MG, UNK
  2. NORVASC [Concomitant]
     Indication: HYPERTENSION
     Dosage: 15 MG, UNK

REACTIONS (4)
  - BLOOD PRESSURE DECREASED [None]
  - CARDIAC DISORDER [None]
  - DIABETES MELLITUS [None]
  - SCIATIC NERVE INJURY [None]
